FAERS Safety Report 7321167-1 (Version None)
Quarter: 2011Q1

REPORT INFORMATION
  Report Type: 
  Country: None (occurrence: None)
  Receive Date: 20110223
  Receipt Date: 20110223
  Transmission Date: 20110831
  Serious: Yes (Other)
  Sender: FDA-Public Use
  Company Number: None

PATIENT
  Sex: Male
  Weight: 74.8435 kg

DRUGS (2)
  1. BUPROPION XL 150 MG LEMMON [Suspect]
     Indication: DEPRESSION
     Dosage: 450 MG Q AM PO
     Route: 048
     Dates: start: 20100305, end: 20110219
  2. ASPIRIN [Suspect]
     Indication: OSTEOARTHRITIS
     Dosage: 650 MG BID PO
     Route: 048
     Dates: start: 20101105, end: 20101110

REACTIONS (2)
  - TINNITUS [None]
  - GAMMA-GLUTAMYLTRANSFERASE INCREASED [None]
